FAERS Safety Report 6274836-9 (Version None)
Quarter: 2009Q3

REPORT INFORMATION
  Report Type: 
  Country: None (occurrence: None)
  Receive Date: 20090721
  Receipt Date: 20070525
  Transmission Date: 20100115
  Serious: Yes (Hospitalization, Other)
  Sender: FDA-Public Use
  Company Number: US-ASTRAZENECA-2006UW23625

PATIENT
  Age: 14099 Day
  Sex: Male
  Weight: 146.5 kg

DRUGS (30)
  1. SEROQUEL [Suspect]
     Indication: OBSESSIVE-COMPULSIVE DISORDER
     Dosage: 100 MG - 200 MG
     Route: 048
     Dates: start: 20020521
  2. SEROQUEL [Suspect]
     Indication: ANXIETY
     Dosage: 100 MG - 200 MG
     Route: 048
     Dates: start: 20020521
  3. SEROQUEL [Suspect]
     Indication: DEPRESSION
     Dosage: 100 MG - 200 MG
     Route: 048
     Dates: start: 20020521
  4. SEROQUEL [Suspect]
     Route: 048
     Dates: start: 20020523
  5. SEROQUEL [Suspect]
     Route: 048
     Dates: start: 20020523
  6. SEROQUEL [Suspect]
     Route: 048
     Dates: start: 20020523
  7. SEROQUEL [Suspect]
     Route: 048
     Dates: start: 20020617
  8. SEROQUEL [Suspect]
     Route: 048
     Dates: start: 20020617
  9. SEROQUEL [Suspect]
     Route: 048
     Dates: start: 20020617
  10. ABILIFY [Concomitant]
  11. GEODON [Concomitant]
  12. NAVANE [Concomitant]
  13. RISPERDAL [Concomitant]
  14. ZYPREXA [Concomitant]
  15. LORAZEPAM [Concomitant]
     Route: 048
  16. TEGRETOL [Concomitant]
     Dosage: 200 - 400 MG
     Route: 048
  17. LORTAB [Concomitant]
     Route: 048
  18. LASIX [Concomitant]
     Dosage: 20 - 40 MG
     Route: 048
  19. HEPARIN [Concomitant]
     Route: 042
  20. PAXIL [Concomitant]
     Route: 048
  21. KLONOPIN [Concomitant]
     Route: 048
  22. ZANTAC [Concomitant]
     Route: 048
  23. ZOLOFT [Concomitant]
     Dosage: 100 - 300 MG
     Route: 048
  24. FLUVOXAMINE MALEATE [Concomitant]
     Dosage: 100 - 200 MG
     Route: 048
  25. METFORMIN HCL [Concomitant]
     Dosage: 500 - 1500 MG
     Route: 065
  26. NEURONTIN [Concomitant]
     Dosage: 300 - 600 MG
     Route: 065
  27. LITHIUM [Concomitant]
     Dosage: 300 - 600 MG
     Route: 065
  28. CLOMIPRAMINE HCL [Concomitant]
     Dosage: 50 - 200 MG
     Route: 048
  29. TRAZODONE [Concomitant]
     Dosage: 100 - 150 MG
     Route: 048
  30. WARFARIN SODIUM [Concomitant]
     Route: 048

REACTIONS (4)
  - DEEP VEIN THROMBOSIS [None]
  - DIABETES MELLITUS [None]
  - DIABETIC NEUROPATHY [None]
  - THROMBOSIS [None]
